FAERS Safety Report 15952059 (Version 4)
Quarter: 2020Q1

REPORT INFORMATION
  Report Type: Spontaneous
  Country: JP (occurrence: JP)
  Receive Date: 20190212
  Receipt Date: 20200319
  Transmission Date: 20200409
  Serious: Yes (Other)
  Sender: FDA-Public Use
  Company Number: JP-009507513-1902JPN004270

PATIENT
  Age: 76 Year
  Sex: Male
  Weight: 60.5 kg

DRUGS (6)
  1. OPDIVO [Suspect]
     Active Substance: NIVOLUMAB
     Dosage: 3 MILLIGRAM/KILOGRAM (150MG/DAY), Q2W (NUMBER OF COURSES IN TOTAL: 7)
     Route: 041
     Dates: start: 20170922, end: 20180424
  2. GLACTIV [Suspect]
     Active Substance: SITAGLIPTIN
     Dosage: 50 MG
     Route: 048
  3. CRESTOR [Concomitant]
     Active Substance: ROSUVASTATIN CALCIUM
     Dosage: UNK
  4. METGLUCO [Concomitant]
     Active Substance: METFORMIN HYDROCHLORIDE
     Dosage: UNK
  5. DEPAS [Concomitant]
     Dosage: UNK
  6. OPDIVO [Suspect]
     Active Substance: NIVOLUMAB
     Indication: MALIGNANT MELANOMA
     Dosage: 3 MILLIGRAM/KILOGRAM (150MG/DAY), Q2W (NUMBER OF COURSES IN TOTAL: 7)
     Route: 041
     Dates: start: 20170425, end: 20170523

REACTIONS (1)
  - Interstitial lung disease [Recovered/Resolved]

NARRATIVE: CASE EVENT DATE: 20170601
